FAERS Safety Report 9329841 (Version 1)
Quarter: 2013Q2

REPORT INFORMATION
  Report Type: Spontaneous
  Country: US (occurrence: US)
  Receive Date: 20130604
  Receipt Date: 20130604
  Transmission Date: 20140414
  Serious: No
  Sender: FDA-Public Use
  Company Number: US-SANOFI-AVENTIS-2013SA003752

PATIENT
  Age: 60 Year
  Sex: Female

DRUGS (3)
  1. SOLOSTAR [Suspect]
     Indication: TYPE 2 DIABETES MELLITUS
     Dates: start: 201203
  2. LANTUS SOLOSTAR [Suspect]
     Indication: TYPE 2 DIABETES MELLITUS
     Dosage: 30U BID OR 60U/DAY DOSE:30 UNIT(S)
     Route: 051
     Dates: start: 201203
  3. NOVOLIN [Concomitant]

REACTIONS (9)
  - Blood glucose increased [Unknown]
  - Drug ineffective [Unknown]
  - Hypertension [Unknown]
  - Influenza [Unknown]
  - Blood glucose decreased [Unknown]
  - Inappropriate schedule of drug administration [Unknown]
  - Unevaluable event [Unknown]
  - Injection site bruising [Unknown]
  - Renal disorder [Unknown]
